FAERS Safety Report 7202311-3 (Version None)
Quarter: 2010Q4

REPORT INFORMATION
  Report Type: 
  Country: None (occurrence: None)
  Receive Date: 20101229
  Receipt Date: 20101221
  Transmission Date: 20110411
  Serious: Yes (Other)
  Sender: FDA-Public Use
  Company Number: FR-MYLANLABS-2006S1006216

PATIENT
  Age: 15 Year
  Sex: Male
  Weight: 54 kg

DRUGS (10)
  1. MERCAPTAMINE BITARTRATE [Suspect]
     Indication: CYSTINOSIS
     Route: 048
     Dates: start: 19980101
  2. MERCAPTAMINE BITARTRATE [Suspect]
     Route: 048
     Dates: end: 20060501
  3. MERCAPTAMINE BITARTRATE [Suspect]
     Route: 048
     Dates: start: 20060501, end: 20060701
  4. MERCAPTAMINE BITARTRATE [Suspect]
     Route: 048
     Dates: start: 20060701
  5. ALFACALCIDOL [Concomitant]
     Route: 048
     Dates: start: 19910509
  6. SOMATROPIN [Concomitant]
     Route: 048
     Dates: start: 19940128
  7. FERROUS FUMARATE [Concomitant]
     Route: 048
     Dates: start: 20040320
  8. POTASSIUM BICARBONATE [Concomitant]
     Route: 048
     Dates: start: 19921125
  9. SODIUM POTASSIUM PHOSPHATE [Concomitant]
     Route: 048
     Dates: start: 19910709
  10. L-CARNITHINE [Concomitant]
     Dates: start: 20060306

REACTIONS (3)
  - LYMPHANGIOMA [None]
  - SKIN FRAGILITY [None]
  - SKIN STRIAE [None]
